FAERS Safety Report 11772781 (Version 4)
Quarter: 2016Q1

REPORT INFORMATION
  Report Type: Spontaneous
  Country: US (occurrence: US)
  Receive Date: 20151124
  Receipt Date: 20160114
  Transmission Date: 20160525
  Serious: Yes (Other)
  Sender: FDA-Public Use
  Company Number: US-PFIZER INC-2015379920

PATIENT
  Age: 66 Year
  Sex: Male
  Weight: 141 kg

DRUGS (5)
  1. WATER PILL [Concomitant]
     Active Substance: UNSPECIFIED INGREDIENT
     Dosage: UNK
  2. PREPARATION H NOS [Suspect]
     Active Substance: COCOA BUTTER\PETROLATUM\PHENYLEPHRINE HYDROCHLORIDE\PHENYLEPHRINE HYDROCHLORIDE OR MINERAL OIL
     Indication: HAEMORRHOIDS
     Dosage: UNK UNK, 1X/DAY (ONCE A DAY IN THE MORNING; ONLY WHEN NEEDED)
     Dates: start: 1977
  3. PREPARATION H NOS [Suspect]
     Active Substance: COCOA BUTTER\PETROLATUM\PHENYLEPHRINE HYDROCHLORIDE\PHENYLEPHRINE HYDROCHLORIDE OR MINERAL OIL
     Indication: SLEEP DISORDER
  4. ASPIRIN. [Concomitant]
     Active Substance: ASPIRIN
     Dosage: UNK
  5. METOPROLOL TARTRATE. [Concomitant]
     Active Substance: METOPROLOL TARTRATE
     Indication: CARDIAC DISORDER
     Dosage: 50 MG, 2X/DAY,ONE IN THE MORNING AND ONE AT NIGHT
     Route: 048

REACTIONS (11)
  - Haemorrhage [Unknown]
  - Product physical issue [Not Recovered/Not Resolved]
  - Proctalgia [Recovered/Resolved]
  - Product use issue [Unknown]
  - Vein rupture [Unknown]
  - Rectal haemorrhage [Recovered/Resolved]
  - Feeling abnormal [Unknown]
  - Discomfort [Unknown]
  - Poor quality drug administered [Not Recovered/Not Resolved]
  - Pain [Recovered/Resolved]
  - Burning sensation [Recovered/Resolved]

NARRATIVE: CASE EVENT DATE: 201510
